FAERS Safety Report 5313008-9 (Version None)
Quarter: 2007Q2

REPORT INFORMATION
  Report Type: 
  Country: None (occurrence: None)
  Receive Date: 20070430
  Receipt Date: 20070418
  Transmission Date: 20071010
  Serious: Yes (Other)
  Sender: FDA-Public Use
  Company Number: US-PFIZER INC-2007019826

PATIENT
  Sex: Female
  Weight: 79.4 kg

DRUGS (15)
  1. CHANTIX [Suspect]
     Indication: SMOKING CESSATION THERAPY
  2. ZITHROMAX [Suspect]
  3. NIZORAL [Suspect]
  4. AVELOX [Suspect]
  5. PNEUMOVAX 23 [Suspect]
  6. KETEK [Suspect]
  7. LEVOXYL [Concomitant]
     Indication: THYROID DISORDER
  8. NEXIUM [Concomitant]
     Indication: DYSPEPSIA
  9. VYTORIN [Concomitant]
     Indication: BLOOD CHOLESTEROL ABNORMAL
  10. VITAMINS [Concomitant]
  11. ANTIBIOTICS [Concomitant]
  12. NICOTINE [Concomitant]
  13. CHLORPHENIRAMINE MALEATE [Concomitant]
  14. COMBIVENT [Concomitant]
  15. ALBUTEROL [Concomitant]

REACTIONS (12)
  - ABNORMAL DREAMS [None]
  - CANDIDIASIS [None]
  - DIARRHOEA [None]
  - DIZZINESS [None]
  - DRUG HYPERSENSITIVITY [None]
  - DYSGEUSIA [None]
  - ERYTHEMA [None]
  - OEDEMA MOUTH [None]
  - PAIN [None]
  - PRURITUS [None]
  - RASH [None]
  - SWELLING [None]
